FAERS Safety Report 20361090 (Version 1)
Quarter: 2022Q1

REPORT INFORMATION
  Report Type: Spontaneous
  Country: GR (occurrence: GR)
  Receive Date: 20220121
  Receipt Date: 20220121
  Transmission Date: 20220423
  Serious: Yes (Other)
  Sender: FDA-Public Use
  Company Number: GR-LUPIN PHARMACEUTICALS INC.-2022-00507

PATIENT
  Age: 66 Year
  Sex: Male

DRUGS (8)
  1. RAMIPRIL [Suspect]
     Active Substance: RAMIPRIL
     Indication: Ejection fraction decreased
     Dosage: 2.5 MILLIGRAM, QD
     Route: 065
  2. FUROSEMIDE [Suspect]
     Active Substance: FUROSEMIDE
     Indication: Ejection fraction decreased
     Dosage: 40 MILLIGRAM, QD
     Route: 065
  3. EPLERENONE [Suspect]
     Active Substance: EPLERENONE
     Indication: Ejection fraction decreased
     Dosage: 25 MILLIGRAM, QD
     Route: 065
  4. AMIODARONE [Interacting]
     Active Substance: AMIODARONE
     Indication: Cardiac failure chronic
     Dosage: 200 MILLIGRAM, QD
     Route: 048
  5. AMIODARONE [Interacting]
     Active Substance: AMIODARONE
     Indication: Atrial fibrillation
  6. DIGOXIN [Interacting]
     Active Substance: DIGOXIN
     Indication: Cardiac failure chronic
     Dosage: 0.5 MILLIGRAM
     Route: 065
  7. DIGOXIN [Interacting]
     Active Substance: DIGOXIN
     Indication: Atrial fibrillation
     Dosage: 0.25 MILLIGRAM (TABLET)
     Route: 065
  8. BISOPROLOL [Concomitant]
     Active Substance: BISOPROLOL
     Indication: Cardiomyopathy
     Dosage: UNK (INITIAL DOSE UNKNOWN)
     Route: 065

REACTIONS (1)
  - Drug ineffective [Unknown]
